FAERS Safety Report 9423633 (Version 1)
Quarter: 2013Q3

REPORT INFORMATION
  Report Type: Report from Study
  Country: US (occurrence: US)
  Receive Date: 20130726
  Receipt Date: 20130726
  Transmission Date: 20140515
  Serious: Yes (Other)
  Sender: FDA-Public Use
  Company Number: US-RB-026652-11

PATIENT
  Age: 50 Year
  Sex: Male

DRUGS (14)
  1. SUBOXONE TABLET [Suspect]
     Indication: DRUG DEPENDENCE
     Route: 060
     Dates: start: 201104, end: 2011
  2. SUBOXONE FILM [Suspect]
     Indication: DRUG DEPENDENCE
     Dosage: SUBOXONE FILM; DOSING DETAILS UNKNOWN
     Route: 060
     Dates: start: 201210, end: 201303
  3. GENERIC BUPRENORPHINE [Suspect]
     Indication: DRUG DEPENDENCE
     Dosage: DOSING DETAILS UNKNOWN
     Route: 060
     Dates: start: 2013
  4. CYMBALTA [Concomitant]
     Indication: DEPRESSION
     Dosage: DOSAGE INFORMATION UNKNOWN
     Route: 065
  5. WELLBUTRIN [Concomitant]
     Indication: DEPRESSION
     Dosage: DOSAGE INFORMATION UNKNOWN
     Route: 065
  6. LYRICA [Concomitant]
     Indication: PAIN
     Dosage: DOSING DETAILS UNKNOWN
     Route: 048
  7. FOCLIN GENERIC [Concomitant]
     Indication: FATIGUE
     Dosage: DOSING DETAILS UNKNOWN
     Route: 048
  8. ABILIFY [Concomitant]
     Indication: DEPRESSION
     Dosage: DOSING DETAILS UNKNOWN
     Route: 048
  9. CLONAZEPAM [Concomitant]
     Indication: ANXIETY
     Dosage: DOSING DETAILS UNKNOWN
     Route: 048
  10. RESTORIL [Concomitant]
     Indication: INSOMNIA
     Dosage: DOSING DETAILS UNKNOWN
     Route: 048
  11. MILK THISTLE [Concomitant]
     Indication: LIVER DISORDER
     Dosage: DOSING DETAILS UNKNOWN
     Route: 048
  12. FOLIC ACID [Concomitant]
     Indication: LIVER DISORDER
     Dosage: DOSING DETAILS UNKNOWN
     Route: 048
  13. B COMPLEX VITAMIN [Concomitant]
     Indication: LIVER DISORDER
     Dosage: DOSING DETAILS UNKNOWN
     Route: 048
  14. PROBIOTIC [Concomitant]
     Indication: LIVER DISORDER
     Dosage: DOSING DETAILS UNKNOWN
     Route: 048

REACTIONS (15)
  - Insomnia [Recovered/Resolved]
  - Anxiety [Recovered/Resolved]
  - Speech disorder [Recovered/Resolved]
  - Jaw disorder [Recovered/Resolved]
  - Tremor [Recovered/Resolved]
  - Anxiety [Recovered/Resolved]
  - Fatigue [Not Recovered/Not Resolved]
  - Pyrexia [Not Recovered/Not Resolved]
  - Hepatitis C [Not Recovered/Not Resolved]
  - Drug dependence [Recovered/Resolved]
  - Irritability [Recovered/Resolved]
  - Agitation [Recovered/Resolved]
  - Ammonia increased [Not Recovered/Not Resolved]
  - Liver disorder [Not Recovered/Not Resolved]
  - Condition aggravated [Not Recovered/Not Resolved]
